FAERS Safety Report 7081233-5 (Version None)
Quarter: 2010Q4

REPORT INFORMATION
  Report Type: 
  Country: None (occurrence: None)
  Receive Date: 20101103
  Receipt Date: 20101027
  Transmission Date: 20110411
  Serious: Yes (Life-Threatening, Other)
  Sender: FDA-Public Use
  Company Number: JP-BAYER-201043655GPV

PATIENT
  Age: 79 Year
  Sex: Male

DRUGS (2)
  1. NAIXAN [Suspect]
     Indication: TUMOUR ASSOCIATED FEVER
     Dosage: TOTAL DAILY DOSE: 300 MG
     Route: 048
     Dates: start: 20100715, end: 20100921
  2. TARCEVA [Suspect]
     Indication: LUNG SQUAMOUS CELL CARCINOMA STAGE UNSPECIFIED
     Dosage: TOTAL DAILY DOSE: 150 MG
     Route: 048
     Dates: start: 20100821, end: 20100916

REACTIONS (4)
  - BACTERAEMIA [None]
  - DRY SKIN [None]
  - PRURITUS [None]
  - STEVENS-JOHNSON SYNDROME [None]
